FAERS Safety Report 9215020 (Version 2)
Quarter: 2014Q1

REPORT INFORMATION
  Report Type: Report from Study
  Country: DE (occurrence: DE)
  Receive Date: 20130405
  Receipt Date: 20140117
  Transmission Date: 20141002
  Serious: Yes (Hospitalization)
  Sender: FDA-Public Use
  Company Number: DE-JNJFOC-20120804611

PATIENT
  Age: 57 Year
  Sex: Male
  Weight: 102 kg

DRUGS (7)
  1. STELARA [Suspect]
     Indication: PSORIASIS
     Route: 058
     Dates: start: 20111104
  2. STELARA [Suspect]
     Indication: PSORIASIS
     Route: 058
     Dates: start: 20110701, end: 20110915
  3. ALLOPURINOL [Concomitant]
     Indication: HYPERTENSION
     Route: 048
     Dates: start: 2007
  4. METFORMIN [Concomitant]
     Indication: DIABETES MELLITUS
     Dates: start: 2007
  5. LISINOPRIL [Concomitant]
     Indication: HYPERTENSION
     Route: 048
     Dates: start: 2007
  6. PANTOPRAZOL [Concomitant]
     Indication: GASTROINTESTINAL DISORDER THERAPY
     Route: 048
     Dates: start: 2007
  7. ISOZID [Concomitant]
     Indication: PROPHYLAXIS
     Route: 048
     Dates: start: 20110608, end: 20120413

REACTIONS (3)
  - Aortic valve stenosis [Unknown]
  - Angina pectoris [Recovered/Resolved]
  - Coronary artery disease [Unknown]
